FAERS Safety Report 6345630-5 (Version None)
Quarter: 2009Q3

REPORT INFORMATION
  Report Type: 
  Country: None (occurrence: None)
  Receive Date: 20090909
  Receipt Date: 20090903
  Transmission Date: 20100115
  Serious: Yes (Other)
  Sender: FDA-Public Use
  Company Number: NL-ROCHE-654908

PATIENT
  Sex: Male

DRUGS (3)
  1. XELODA [Suspect]
     Dosage: FREQUENCY REPORTED AS BID 3X3 WEEKS
     Route: 048
     Dates: start: 20080801
  2. XELODA [Suspect]
     Route: 048
     Dates: start: 20090101, end: 20090301
  3. DEXAMETHASONE TAB [Concomitant]
     Route: 042
     Dates: start: 20080801, end: 20080801

REACTIONS (3)
  - INTRAOCULAR PRESSURE INCREASED [None]
  - OCULAR HYPERAEMIA [None]
  - VISUAL IMPAIRMENT [None]
